FAERS Safety Report 16423006 (Version 1)
Quarter: 2019Q2

REPORT INFORMATION
  Report Type: Spontaneous
  Country: US (occurrence: US)
  Receive Date: 20190612
  Receipt Date: 20190612
  Transmission Date: 20190711
  Serious: Yes (Other)
  Sender: FDA-Public Use
  Company Number: US-SHIRE-US201918450

PATIENT
  Sex: Female

DRUGS (1)
  1. LIALDA [Suspect]
     Active Substance: MESALAMINE
     Indication: PRODUCT USED FOR UNKNOWN INDICATION
     Dosage: 2.4 (UNIT UNKNOWN)
     Route: 065
     Dates: start: 20190504, end: 20190509

REACTIONS (2)
  - Deafness unilateral [Unknown]
  - Tinnitus [Unknown]

NARRATIVE: CASE EVENT DATE: 20190509
